FAERS Safety Report 10193145 (Version 1)
Quarter: 2014Q2

REPORT INFORMATION
  Report Type: Spontaneous
  Country: US (occurrence: US)
  Receive Date: 20140524
  Receipt Date: 20140524
  Transmission Date: 20141212
  Serious: No
  Sender: FDA-Public Use
  Company Number: US-SA-2013SA109305

PATIENT
  Age: 72 Year
  Sex: Female
  Weight: 89 kg

DRUGS (8)
  1. SOLOSTAR [Suspect]
     Indication: DIABETES MELLITUS
     Dates: start: 20130618
  2. LANTUS SOLOSTAR [Suspect]
     Indication: DIABETES MELLITUS
     Dosage: DOSE:66 UNIT(S)
     Route: 051
     Dates: start: 20130618
  3. NOVOLOG [Concomitant]
     Dosage: DOSE- 5-30 UNITS
     Route: 065
  4. AMLODIPINE BESILATE [Concomitant]
     Indication: HYPERTENSION
  5. GEMFIBROZIL [Concomitant]
     Indication: HYPERTENSION
  6. LISINOPRIL [Concomitant]
     Indication: HYPERTENSION
  7. METFORMIN [Concomitant]
     Indication: DIABETES MELLITUS
  8. TRIAMTERENE [Concomitant]
     Indication: FLUID RETENTION

REACTIONS (2)
  - Skin mass [Not Recovered/Not Resolved]
  - Injection site haemorrhage [Unknown]
